FAERS Safety Report 19796094 (Version 1)
Quarter: 2021Q3

REPORT INFORMATION
  Report Type: Other
  Country: US (occurrence: US)
  Receive Date: 20210907
  Receipt Date: 20210907
  Transmission Date: 20211014
  Serious: No
  Sender: FDA-Public Use
  Company Number: US-ROCHE-2900399

PATIENT
  Age: 51 Year
  Sex: Male
  Weight: 66.74 kg

DRUGS (5)
  1. OCREVUS [Suspect]
     Active Substance: OCRELIZUMAB
     Indication: RELAPSING MULTIPLE SCLEROSIS
     Dosage: ONGOING YES
     Route: 065
     Dates: start: 20210513
  2. REMDESIVIR. [Concomitant]
     Active Substance: REMDESIVIR
  3. PREDNISONE. [Concomitant]
     Active Substance: PREDNISONE
  4. OCREVUS [Suspect]
     Active Substance: OCRELIZUMAB
     Indication: PRIMARY PROGRESSIVE MULTIPLE SCLEROSIS
     Dosage: FIRST TWO 300 MG SEPARATED BY TWO WEEKS ;ONGOING: UNKNOWN
     Route: 042
     Dates: start: 202104
  5. BETAMETHASONE. [Concomitant]
     Active Substance: BETAMETHASONE
     Route: 042

REACTIONS (1)
  - COVID-19 [Not Recovered/Not Resolved]

NARRATIVE: CASE EVENT DATE: 20210826
